FAERS Safety Report 23019763 (Version 1)
Quarter: 2023Q4

REPORT INFORMATION
  Report Type: Spontaneous
  Country: US (occurrence: US)
  Receive Date: 20231003
  Receipt Date: 20231003
  Transmission Date: 20240109
  Serious: No
  Sender: FDA-Public Use
  Company Number: US-AMGEN-USASP2023175115

PATIENT
  Sex: Female

DRUGS (1)
  1. AIMOVIG [Suspect]
     Active Substance: ERENUMAB-AOOE
     Indication: Product used for unknown indication
     Dosage: 70 MILLIGRAM
     Route: 065
     Dates: start: 2020

REACTIONS (6)
  - Injection site pain [Unknown]
  - Injection site haemorrhage [Unknown]
  - Accidental exposure to product [Unknown]
  - Incorrect dose administered by product [Unknown]
  - Device difficult to use [Unknown]
  - Wrong technique in product usage process [Unknown]

NARRATIVE: CASE EVENT DATE: 20230930
